FAERS Safety Report 6125331-9 (Version None)
Quarter: 2009Q1

REPORT INFORMATION
  Report Type: 
  Country: None (occurrence: None)
  Receive Date: 20090320
  Receipt Date: 20081122
  Transmission Date: 20090719
  Serious: Yes (Hospitalization)
  Sender: FDA-Public Use
  Company Number: ES-JNJFOC-20090304412

PATIENT
  Age: 33 Year
  Sex: Male

DRUGS (5)
  1. RISPERIDONE [Suspect]
     Route: 065
  2. RISPERIDONE [Suspect]
     Route: 065
  3. RISPERIDONE [Suspect]
     Route: 065
  4. RISPERIDONE [Suspect]
     Route: 065
  5. RISPERIDONE [Suspect]
     Indication: SCHIZOPHRENIA, PARANOID TYPE
     Route: 065

REACTIONS (6)
  - DELUSION [None]
  - DELUSION OF REFERENCE [None]
  - DEREALISATION [None]
  - PSYCHOTIC DISORDER [None]
  - SEXUAL DYSFUNCTION [None]
  - TREATMENT NONCOMPLIANCE [None]
